FAERS Safety Report 5611265-2 (Version None)
Quarter: 2008Q1

REPORT INFORMATION
  Report Type: 
  Country: None (occurrence: None)
  Receive Date: 20080201
  Receipt Date: 20080130
  Transmission Date: 20080703
  Serious: Yes (Hospitalization)
  Sender: FDA-Public Use
  Company Number: US-BRISTOL-MYERS SQUIBB COMPANY-14017396

PATIENT
  Age: 72 Year
  Sex: Male
  Weight: 78 kg

DRUGS (5)
  1. CETUXIMAB [Suspect]
     Indication: PANCREATIC CARCINOMA
     Dosage: MAINTENANCE DOSE = 100MG/M2 EVERY WEEK.  START DATE(28-NOV-2007): 400MG/M2 03-DEC-2007: 250MG/M2
     Route: 042
     Dates: start: 20071203, end: 20071203
  2. OXALIPLATIN [Suspect]
     Indication: PANCREATIC CARCINOMA
     Route: 042
     Dates: start: 20071128, end: 20071128
  3. GEMCITABINE [Suspect]
     Indication: PANCREATIC CARCINOMA
     Route: 042
     Dates: start: 20071128, end: 20071128
  4. INDOCIN [Suspect]
     Indication: GOUT
     Route: 048
     Dates: start: 20071206, end: 20071207
  5. ALLOPURINOL [Suspect]
     Indication: GOUT
     Route: 048
     Dates: start: 20060601, end: 20071209

REACTIONS (4)
  - DEHYDRATION [None]
  - LEUKOCYTOCLASTIC VASCULITIS [None]
  - PETECHIAE [None]
  - PURPURA [None]
